FAERS Safety Report 7893105-4 (Version None)
Quarter: 2011Q4

REPORT INFORMATION
  Report Type: 
  Country: None (occurrence: None)
  Receive Date: 20111104
  Receipt Date: 20111018
  Transmission Date: 20120403
  Serious: Yes (Hospitalization, Other)
  Sender: FDA-Public Use
  Company Number: US-ROCHE-1005356

PATIENT
  Age: 59 Year
  Sex: Female
  Weight: 104.78 kg

DRUGS (11)
  1. CARBOPLATIN [Suspect]
     Dosage: NO PRIOR RADIOTHERAPY, AUC6 OVER 30 MINUTES ON DAY 1 X 6 CYCLES
     Route: 042
  2. ANTIVERT NOS [Concomitant]
  3. AVASTIN [Suspect]
     Dosage: PRIOR RADIOTHERAPY, OVER 30-90 MIN ON DAY 1 (STARTING WITH CYCLE 2 FOR THOSE PTS ENTERING POST SURGE
     Route: 042
  4. PACLITAXEL [Suspect]
     Indication: ENDOMETRIAL CANCER
     Dosage: PRIOR RADIOTHERAPY, OVER 3 HRS ON DAY 1 X 6 CYCLES
     Route: 042
     Dates: start: 20110520
  5. CARBOPLATIN [Suspect]
     Indication: ENDOMETRIAL CANCER
     Dosage: PRIOR RADIOTHERAPY, AUC5 OVER 30 MINUTES ON DAY 1 X 6 CYCLES
     Route: 042
     Dates: start: 20110520
  6. COZAAR [Concomitant]
  7. LOPRESSOR [Concomitant]
  8. AVASTIN [Suspect]
     Dosage: NO PRIOR RADIOTHERAPY,OVER 30-90 MIN ON DAY 1 (PATIENT CONTINUE TO RECEIVED MAINTENANCE TREATMENT UN
     Route: 042
  9. PACLITAXEL [Suspect]
     Dosage: NO PRIOR RADIOTHERAPY, OVER 3 HRS ON DAY 1 X 6 CYCLES
     Route: 042
  10. AVASTIN [Suspect]
     Dosage: NO PRIOR RADIOTHERAPY, OVER 30-90 MIN ON DAY 1 (STARTING WITH CYCLE 2 FOR THOSE PTS ENTERING POST SU
  11. AVASTIN [Suspect]
     Indication: ENDOMETRIAL CANCER
     Dosage: PRIOR RADIOTHERAPY,OVER 30-90 MIN ON DAY 1 (PATIENT CONTINUE TO RECEIVED MAINTENANCE TREATMENT UNTIL
     Dates: start: 20110520

REACTIONS (15)
  - VOMITING [None]
  - DIZZINESS [None]
  - HYPOCALCAEMIA [None]
  - WHITE BLOOD CELL COUNT DECREASED [None]
  - ANAEMIA [None]
  - HYPOALBUMINAEMIA [None]
  - PLATELET COUNT DECREASED [None]
  - HYPERGLYCAEMIA [None]
  - DIARRHOEA [None]
  - HYPOKALAEMIA [None]
  - HYPOPHOSPHATAEMIA [None]
  - NAUSEA [None]
  - NEUTROPHIL COUNT DECREASED [None]
  - HYPOMAGNESAEMIA [None]
  - FATIGUE [None]
